FAERS Safety Report 21387870 (Version 1)
Quarter: 2022Q3

REPORT INFORMATION
  Report Type: Spontaneous
  Country: US (occurrence: None)
  Receive Date: 20220926
  Receipt Date: 20220926
  Transmission Date: 20221027
  Serious: Yes (Hospitalization)
  Sender: FDA-Public Use
  Company Number: None

PATIENT
  Sex: Female
  Weight: 46.31 kg

DRUGS (17)
  1. IBRANCE [Suspect]
     Active Substance: PALBOCICLIB
     Indication: Breast cancer female
     Dosage: FREQUENCY : DAILY;?
     Route: 048
  2. ASPIRIN [Concomitant]
  3. AORVASTATIN [Concomitant]
  4. VITAMIN D3 [Concomitant]
  5. CLOPIDOGREL BISULFAE [Concomitant]
  6. COLACE [Concomitant]
  7. FOLIC ACID [Concomitant]
  8. FUROSEMIDE [Concomitant]
  9. GABAPENTIN [Concomitant]
  10. NORCO [Concomitant]
  11. ISOSORBIDE [Concomitant]
  12. TOPROL [Concomitant]
  13. MONTALUKAST [Concomitant]
  14. NOVOLOG [Concomitant]
  15. NITROGLYERIN [Concomitant]
  16. TRESIBA [Concomitant]
     Active Substance: INSULIN DEGLUDEC
  17. POTASSIUM CHLORIDE [Concomitant]

REACTIONS (1)
  - Hospitalisation [None]
